FAERS Safety Report 7617086-3 (Version None)
Quarter: 2011Q3

REPORT INFORMATION
  Report Type: 
  Country: None (occurrence: None)
  Receive Date: 20110718
  Receipt Date: 20110705
  Transmission Date: 20111222
  Serious: Yes (Hospitalization)
  Sender: FDA-Public Use
  Company Number: US-ELI_LILLY_AND_COMPANY-US201105004901

PATIENT
  Sex: Female

DRUGS (2)
  1. BENADRYL [Concomitant]
  2. FORTEO [Suspect]
     Indication: OSTEOPOROSIS
     Dosage: UNK UNK, QD
     Route: 065

REACTIONS (4)
  - DRUG DOSE OMISSION [None]
  - ABNORMAL BEHAVIOUR [None]
  - NERVOUSNESS [None]
  - URINARY TRACT INFECTION [None]
